FAERS Safety Report 6273050-0 (Version None)
Quarter: 2009Q3

REPORT INFORMATION
  Report Type: 
  Country: None (occurrence: None)
  Receive Date: 20090720
  Receipt Date: 20090709
  Transmission Date: 20100115
  Serious: Yes (Death, Other)
  Sender: FDA-Public Use
  Company Number: GB-RANBAXY-2009RR-24647

PATIENT
  Age: 63 Year
  Sex: Male

DRUGS (5)
  1. GABAPENTIN [Suspect]
     Indication: NEURALGIA
     Route: 048
  2. MORPHINE [Suspect]
     Indication: NEURALGIA
     Dosage: 60 MG, QD
     Route: 008
  3. MORPHINE [Suspect]
     Dosage: 10 MG, QD
  4. BUPIVACAINE HYDROCHLORIDE [Suspect]
     Indication: NEURALGIA
     Dosage: 13 ML, QD
     Route: 008
  5. CATAPRES [Suspect]
     Indication: NEURALGIA
     Dosage: 450 UG, QD
     Route: 008

REACTIONS (3)
  - DEATH [None]
  - DRUG INEFFECTIVE [None]
  - DRUG TOXICITY [None]
